FAERS Safety Report 15428382 (Version 3)
Quarter: 2019Q2

REPORT INFORMATION
  Report Type: Report from Study
  Country: None (occurrence: US)
  Receive Date: 20180926
  Receipt Date: 20190529
  Transmission Date: 20190711
  Serious: Yes (Hospitalization, Other)
  Sender: FDA-Public Use
  Company Number: US-ABBVIE-18K-163-2428368-00

PATIENT
  Age: 54 Year
  Sex: Male
  Weight: 106.69 kg

DRUGS (3)
  1. DOXYCYCLINE. [Concomitant]
     Active Substance: DOXYCYCLINE
     Indication: HIDRADENITIS
  2. ACYCLOVIR. [Concomitant]
     Active Substance: ACYCLOVIR
     Indication: OPHTHALMIC HERPES ZOSTER
  3. HUMIRA [Suspect]
     Active Substance: ADALIMUMAB
     Indication: HIDRADENITIS
     Route: 058
     Dates: start: 2017, end: 201904

REACTIONS (11)
  - Intestinal perforation [Not Recovered/Not Resolved]
  - Diverticulitis [Recovering/Resolving]
  - Impaired healing [Recovered/Resolved]
  - Drug ineffective [Unknown]
  - Crying [Not Recovered/Not Resolved]
  - Skin haemorrhage [Recovering/Resolving]
  - Discharge [Not Recovered/Not Resolved]
  - Hidradenitis [Recovered/Resolved]
  - Abscess neck [Recovered/Resolved]
  - Inflammation [Not Recovered/Not Resolved]
  - Hidradenitis [Not Recovered/Not Resolved]

NARRATIVE: CASE EVENT DATE: 201810
